FAERS Safety Report 17839171 (Version 1)
Quarter: 2020Q2

REPORT INFORMATION
  Report Type: Spontaneous
  Country: US (occurrence: US)
  Receive Date: 20200528
  Receipt Date: 20200528
  Transmission Date: 20200714
  Serious: No
  Sender: FDA-Public Use
  Company Number: None

PATIENT
  Age: 39 Year
  Sex: Female
  Weight: 71.1 kg

DRUGS (23)
  1. VITAMIN C [Concomitant]
     Active Substance: ASCORBIC ACID
  2. IRON TABLETS [Concomitant]
  3. FISH OIL [Concomitant]
     Active Substance: FISH OIL
  4. SELENIUM [Concomitant]
     Active Substance: SELENIUM
  5. VALERIAN ROOT TEA [Concomitant]
  6. HYDROXYZINE [Concomitant]
     Active Substance: HYDROXYZINE HYDROCHLORIDE
  7. MAGNESIUM GLYCINATE [Concomitant]
     Active Substance: MAGNESIUM GLYCINATE
  8. MELATONIN [Concomitant]
     Active Substance: MELATONIN
  9. UNISOM SLEEPTABS [Concomitant]
     Active Substance: DOXYLAMINE SUCCINATE
  10. TESTOSTERONE CREAM [Concomitant]
     Active Substance: TESTOSTERONE
  11. ARMOUR THYROID [Concomitant]
     Active Substance: THYROID, PORCINE
  12. CALCIUM WITH VITAMIN D [Concomitant]
     Active Substance: CALCIUM\VITAMIN D
  13. FLONASE [Concomitant]
     Active Substance: FLUTICASONE PROPIONATE
  14. POTASSIUM [Concomitant]
     Active Substance: POTASSIUM
  15. STOOL SOFTENER (DOCUSATE) [Concomitant]
     Active Substance: DOCUSATE
  16. PSYLLIUM [Concomitant]
     Active Substance: PLANTAGO SEED
  17. LOW DOSE NALTREXONE [Concomitant]
     Active Substance: NALTREXONE
  18. PROGESTERONE. [Concomitant]
     Active Substance: PROGESTERONE
  19. ZOFRAN [Concomitant]
     Active Substance: ONDANSETRON HYDROCHLORIDE
  20. BUPROPION XL TAB [Suspect]
     Active Substance: BUPROPION HYDROCHLORIDE
     Indication: DEPRESSION
     Dosage: ?          QUANTITY:90 TABLET(S);?
     Route: 048
     Dates: start: 20200505, end: 20200521
  21. WOMEN^S MULTIVITAMIN [Concomitant]
  22. I-THEANINE [Concomitant]
  23. DIM [Concomitant]

REACTIONS (7)
  - Middle insomnia [None]
  - Respiratory arrest [None]
  - Gait inability [None]
  - Dyspnoea [None]
  - Insomnia [None]
  - Eating disorder [None]
  - Speech disorder [None]

NARRATIVE: CASE EVENT DATE: 20200505
